FAERS Safety Report 16273500 (Version 1)
Quarter: 2019Q2

REPORT INFORMATION
  Report Type: Spontaneous
  Country: US (occurrence: US)
  Receive Date: 20190329
  Receipt Date: 20190329
  Transmission Date: 20190711
  Serious: No
  Sender: FDA-Public Use
  Company Number: None

PATIENT
  Sex: Female

DRUGS (1)
  1. XELJANZ [Suspect]
     Active Substance: TOFACITINIB CITRATE

REACTIONS (5)
  - Peripheral arterial occlusive disease [None]
  - Diverticulitis [None]
  - Bedridden [None]
  - Thrombosis [None]
  - Squamous cell carcinoma [None]
